FAERS Safety Report 7113593-0 (Version None)
Quarter: 2010Q4

REPORT INFORMATION
  Report Type: 
  Country: None (occurrence: None)
  Receive Date: 20101119
  Receipt Date: 20101111
  Transmission Date: 20110411
  Serious: Yes (Other)
  Sender: FDA-Public Use
  Company Number: DE-NOVOPROD-317236

PATIENT
  Sex: Male
  Weight: 73.3 kg

DRUGS (7)
  1. NOVORAPID [Suspect]
     Indication: TYPE 1 DIABETES MELLITUS
     Dosage: PRN
     Route: 058
     Dates: start: 20071101, end: 20080407
  2. NOVORAPID [Suspect]
     Dosage: UNK
     Route: 058
     Dates: start: 20080601, end: 20080818
  3. NOVORAPID [Suspect]
     Dosage: UNK
     Route: 058
     Dates: start: 20080819, end: 20100419
  4. LEVEMIR [Suspect]
     Indication: TYPE 1 DIABETES MELLITUS
     Dosage: 8-9U
     Dates: start: 20071101, end: 20080601
  5. LEVEMIR [Suspect]
     Dosage: 17-20U
     Dates: start: 20080819, end: 20081201
  6. LANTUS [Concomitant]
     Indication: TYPE 1 DIABETES MELLITUS
     Dosage: UNK
     Dates: start: 20081202, end: 20100419
  7. APIDRA [Concomitant]
     Indication: TYPE 1 DIABETES MELLITUS
     Dosage: UNK
     Dates: start: 20100420

REACTIONS (5)
  - BLOOD GLUCOSE FLUCTUATION [None]
  - CONVULSION [None]
  - HYPERGLYCAEMIA [None]
  - HYPOGLYCAEMIA [None]
  - HYPOGLYCAEMIC COMA [None]
